FAERS Safety Report 5141082-1 (Version None)
Quarter: 2006Q4

REPORT INFORMATION
  Report Type: 
  Country: None (occurrence: None)
  Receive Date: 20061101
  Receipt Date: 20061019
  Transmission Date: 20070319
  Serious: Yes (Other)
  Sender: FDA-Public Use
  Company Number: US-JNJFOC-20061005110

PATIENT
  Sex: Female
  Weight: 109.32 kg

DRUGS (16)
  1. FENTANYL TRANSDERMAL SYSTEM [Suspect]
     Indication: ARTHRALGIA
     Route: 062
  2. FENTANYL TRANSDERMAL SYSTEM [Suspect]
     Indication: BACK PAIN
     Route: 062
  3. FENTANYL TRANSDERMAL SYSTEM [Suspect]
     Indication: ARTHRALGIA
     Route: 062
  4. FENTANYL TRANSDERMAL SYSTEM [Suspect]
     Indication: BACK PAIN
     Route: 062
  5. ASPIRIN [Concomitant]
     Route: 048
  6. ATROPINE [Concomitant]
     Route: 048
  7. WELLBUTRIN [Concomitant]
     Indication: DEPRESSION
     Route: 048
  8. LEXAPRO [Concomitant]
     Indication: DEPRESSION
     Route: 048
  9. LORTAB [Concomitant]
     Indication: PAIN
     Dosage: 3 TO 5 TIMES A DAY
     Route: 048
  10. POTASSIUM ACETATE [Concomitant]
     Route: 048
  11. CALCIUM AND VITAMIN D [Concomitant]
     Route: 048
  12. CARBIDOGA LEVODOPA [Concomitant]
     Indication: RESTLESS LEGS SYNDROME
     Route: 048
  13. FUROSEMIDE [Concomitant]
     Route: 048
  14. NEXIUM [Concomitant]
     Route: 048
  15. MECLIZINE [Concomitant]
     Dosage: 5 TO 6 TIMES A DAY
     Route: 048
  16. LISINOPRIL [Concomitant]
     Indication: ANGIOPATHY
     Route: 048

REACTIONS (7)
  - CEREBROVASCULAR ACCIDENT [None]
  - CHEST PAIN [None]
  - MEMORY IMPAIRMENT [None]
  - PHARMACEUTICAL PRODUCT COMPLAINT [None]
  - THERAPEUTIC RESPONSE DECREASED [None]
  - TRANSIENT ISCHAEMIC ATTACK [None]
  - WEIGHT INCREASED [None]
